FAERS Safety Report 8455814-8 (Version None)
Quarter: 2012Q2

REPORT INFORMATION
  Report Type: 
  Country: None (occurrence: None)
  Receive Date: 20120323
  Receipt Date: 20111003
  Transmission Date: 20120825
  Serious: Yes (Hospitalization)
  Sender: FDA-Public Use
  Company Number: 163-21880-11092287

PATIENT
  Age: 77 Year
  Sex: Female

DRUGS (4)
  1. REVLIMID [Suspect]
     Indication: MULTIPLE MYELOMA
     Dosage: 15 MG, DAILY X 3 WEEKS/OFF 1 WEEK, PO : 15 MG, 3 WEEKS ON/OFF 1 WEEK, PO
     Route: 048
     Dates: start: 20110325
  2. REVLIMID [Suspect]
     Indication: MULTIPLE MYELOMA
     Dosage: 15 MG, DAILY X 3 WEEKS/OFF 1 WEEK, PO : 15 MG, 3 WEEKS ON/OFF 1 WEEK, PO
     Route: 048
     Dates: start: 20110407
  3. BABY ASPIRIN (ACETYSALICYLIC ACID) [Concomitant]
  4. DECADRON [Concomitant]

REACTIONS (1)
  - THROMBOSIS [None]
